FAERS Safety Report 17443976 (Version 1)
Quarter: 2020Q1

REPORT INFORMATION
  Report Type: Spontaneous
  Country: AF (occurrence: AF)
  Receive Date: 20200220
  Receipt Date: 20200220
  Transmission Date: 20200409
  Serious: No
  Sender: FDA-Public Use
  Company Number: None

PATIENT
  Age: 68 Year
  Sex: Female

DRUGS (1)
  1. ZEJULA [Suspect]
     Active Substance: NIRAPARIB
     Indication: OVARIAN CANCER
     Route: 048
     Dates: start: 20200206

REACTIONS (4)
  - Abdominal discomfort [None]
  - Pleural effusion [None]
  - Dyspnoea [None]
  - Limb discomfort [None]

NARRATIVE: CASE EVENT DATE: 20200219
